FAERS Safety Report 11777122 (Version 1)
Quarter: 2015Q4

REPORT INFORMATION
  Report Type: Spontaneous
  Country: US (occurrence: US)
  Receive Date: 20151125
  Receipt Date: 20151125
  Transmission Date: 20160304
  Serious: Yes (Other)
  Sender: FDA-Public Use
  Company Number: US-SUN PHARMACEUTICAL INDUSTRIES LTD-2015US-106573

PATIENT
  Age: 67 Year

DRUGS (4)
  1. METHOHEXITAL [Interacting]
     Active Substance: METHOHEXITAL
     Indication: PRODUCT USED FOR UNKNOWN INDICATION
     Dosage: 20 MG, UNK
     Route: 065
  2. MIDAZOLAM [Interacting]
     Active Substance: MIDAZOLAM\MIDAZOLAM HYDROCHLORIDE
     Indication: PRODUCT USED FOR UNKNOWN INDICATION
     Dosage: 3 MG, UNK
     Route: 065
  3. ATROPINE. [Suspect]
     Active Substance: ATROPINE
     Indication: BRADYCARDIA
     Dosage: 2 MG IN 0.5 MG INCREMENTS
     Route: 065
  4. FENTANYL. [Interacting]
     Active Substance: FENTANYL
     Indication: PRODUCT USED FOR UNKNOWN INDICATION
     Dosage: 50 MCG, UNK
     Route: 065

REACTIONS (7)
  - Delirium [Recovered/Resolved]
  - Sedation [Unknown]
  - Drug interaction [Unknown]
  - Mydriasis [None]
  - Flushing [None]
  - Toxicity to various agents [Unknown]
  - Dyskinesia [None]
